FAERS Safety Report 15417938 (Version 1)
Quarter: 2018Q3

REPORT INFORMATION
  Report Type: Spontaneous
  Country: US (occurrence: US)
  Receive Date: 20180924
  Receipt Date: 20180924
  Transmission Date: 20181010
  Serious: Yes (Other)
  Sender: FDA-Public Use
  Company Number: US-SA-2017SA263219

PATIENT
  Age: 38 Year
  Sex: Female
  Weight: 67.5 kg

DRUGS (10)
  1. TAXOTERE [Suspect]
     Active Substance: DOCETAXEL
     Dosage: 130 MG,Q3W
     Route: 042
     Dates: start: 20070914, end: 20070914
  2. CEFALEXIN [Concomitant]
     Active Substance: CEPHALEXIN
  3. LORAZEPAM. [Concomitant]
     Active Substance: LORAZEPAM
  4. ANZEMET [Concomitant]
     Active Substance: DOLASETRON MESYLATE
  5. PROCHLORPERAZINE. [Concomitant]
     Active Substance: PROCHLORPERAZINE
  6. ACICLOVIR [Concomitant]
     Active Substance: ACYCLOVIR
  7. TAXOTERE [Suspect]
     Active Substance: DOCETAXEL
     Indication: BREAST CANCER
     Dosage: 130 MG,Q3W
     Route: 042
     Dates: start: 20070713, end: 20070713
  8. NEOSAR [Concomitant]
     Active Substance: CYCLOPHOSPHAMIDE
  9. DEXAMETHASONE. [Concomitant]
     Active Substance: DEXAMETHASONE
  10. ZOFRAN [ONDANSETRON] [Concomitant]

REACTIONS (2)
  - Alopecia [Recovering/Resolving]
  - Psychological trauma [Unknown]

NARRATIVE: CASE EVENT DATE: 20080314
